FAERS Safety Report 5015732-4 (Version None)
Quarter: 2006Q2

REPORT INFORMATION
  Report Type: 
  Country: None (occurrence: None)
  Receive Date: 20060526
  Receipt Date: 20060517
  Transmission Date: 20061013
  Serious: Yes (Death)
  Sender: FDA-Public Use
  Company Number: 224393

PATIENT
  Age: 77 Year
  Sex: Female
  Weight: 72.6 kg

DRUGS (1)
  1. HERCEPTIN [Suspect]
     Indication: BREAST CANCER
     Dosage: SINGLE, INTRAVENOUS
     Route: 042
     Dates: start: 20060420

REACTIONS (4)
  - FEELING COLD [None]
  - INFUSION RELATED REACTION [None]
  - NAUSEA [None]
  - SKIN DISCOLOURATION [None]
